FAERS Safety Report 5328899-5 (Version None)
Quarter: 2007Q2

REPORT INFORMATION
  Report Type: 
  Country: None (occurrence: None)
  Receive Date: 20070518
  Receipt Date: 20070514
  Transmission Date: 20071010
  Serious: Yes (Life-Threatening, Hospitalization)
  Sender: FDA-Public Use
  Company Number: US-ALLERGAN-0604598US

PATIENT
  Sex: Female

DRUGS (1)
  1. BOTOX [Suspect]
     Indication: DYSPHONIA
     Dosage: UNK, SINGLE
     Dates: start: 20060821, end: 20060821

REACTIONS (2)
  - CARBON DIOXIDE INCREASED [None]
  - LUNG DISORDER [None]
